FAERS Safety Report 23246456 (Version 4)
Quarter: 2024Q4

REPORT INFORMATION
  Report Type: Spontaneous
  Country: US (occurrence: US)
  Receive Date: 20231130
  Receipt Date: 20241112
  Transmission Date: 20250115
  Serious: Yes (Death, Hospitalization, Other)
  Sender: SANOFI AVENTIS
  Company Number: US-SA-SAC20231128000182

PATIENT
  Age: 97 Year
  Sex: Male

DRUGS (20)
  1. DUPIXENT [Suspect]
     Active Substance: DUPILUMAB
     Indication: Dermatitis
     Dosage: 600 MG, 1X
     Route: 058
     Dates: start: 202311, end: 202311
  2. DUPIXENT [Suspect]
     Active Substance: DUPILUMAB
     Dosage: 300 MG, QOW
     Route: 058
  3. DICLOFENAC SODIUM [Concomitant]
     Active Substance: DICLOFENAC SODIUM
     Indication: Pain
     Dosage: 1.000DF QID
     Route: 061
  4. OXYGEN [Concomitant]
     Active Substance: OXYGEN
     Indication: Chronic obstructive pulmonary disease
  5. OXYCODONE [Concomitant]
     Active Substance: OXYCODONE
     Indication: Pain
     Dosage: 1.000DF Q8H
     Route: 048
  6. FERROUS SULFATE [Concomitant]
     Active Substance: FERROUS SULFATE
     Dosage: 1.000DF TIW
     Route: 048
  7. Budesonide;Formoterol fumarate;Glycopyrronium bromide [Concomitant]
     Dosage: 2.000DF Q12H
  8. OCUVITE [Concomitant]
     Active Substance: VITAMINS
     Dosage: 1.000DF BID
     Route: 048
  9. VITAMINS [Concomitant]
     Active Substance: VITAMINS
     Dosage: 1.000DF QD
     Route: 048
  10. BETAMETHASONE DIPROPIONATE [Concomitant]
     Active Substance: BETAMETHASONE DIPROPIONATE
     Dosage: BID
     Route: 061
  11. MIRALAX [Concomitant]
     Active Substance: POLYETHYLENE GLYCOL 3350
     Dosage: 1.000DF BID
     Route: 048
  12. APIXABAN [Concomitant]
     Active Substance: APIXABAN
     Dosage: 1.000DF BID
     Route: 048
  13. MUCINEX [Concomitant]
     Active Substance: GUAIFENESIN
     Dosage: 1.000DF PRN
     Route: 048
  14. TYLENOL [Concomitant]
     Active Substance: ACETAMINOPHEN
     Dosage: 3.000DF Q6H
     Route: 048
  15. VITAMIN C [Concomitant]
     Active Substance: ASCORBIC ACID
     Dosage: 1.000DF QD
  16. ELIQUIS [Concomitant]
     Active Substance: APIXABAN
  17. TRIAMCINOLONE [Concomitant]
     Active Substance: TRIAMCINOLONE
     Dosage: BID
     Route: 061
  18. LYRICA [Concomitant]
     Active Substance: PREGABALIN
     Dosage: 1.000DF QD
     Route: 048
  19. PROPYLENE GLYCOL [Concomitant]
     Active Substance: PROPYLENE GLYCOL
     Dosage: 1.000DROP (1/12 MILLILITRE) QD
     Route: 047
  20. HEPARIN [Concomitant]
     Active Substance: HEPARIN SODIUM
     Route: 042

REACTIONS (25)
  - Lung neoplasm malignant [Fatal]
  - Pulmonary mass [Fatal]
  - Disease progression [Fatal]
  - Lung consolidation [Fatal]
  - Pulmonary embolism [Unknown]
  - Haematochezia [Unknown]
  - Acute kidney injury [Unknown]
  - Hyperkalaemia [Unknown]
  - Dyspnoea [Unknown]
  - Chest pain [Unknown]
  - Dizziness [Unknown]
  - Hip fracture [Unknown]
  - Deep vein thrombosis [Unknown]
  - Metastases to bone [Unknown]
  - Lymphadenopathy [Unknown]
  - Brain natriuretic peptide increased [Unknown]
  - Haemoptysis [Unknown]
  - Diverticulum intestinal [Unknown]
  - Pleural effusion [Unknown]
  - Fall [Unknown]
  - Haemorrhage [Unknown]
  - Bone lesion [Unknown]
  - Lymphadenopathy mediastinal [Unknown]
  - Injection site discomfort [Unknown]
  - Product use in unapproved indication [Unknown]

NARRATIVE: CASE EVENT DATE: 20231201
